FAERS Safety Report 6305624-2 (Version None)
Quarter: 2009Q3

REPORT INFORMATION
  Report Type: 
  Country: None (occurrence: None)
  Receive Date: 20090806
  Receipt Date: 20090716
  Transmission Date: 20100115
  Serious: Yes (Other)
  Sender: FDA-Public Use
  Company Number: 002310

PATIENT
  Age: 60 Year
  Sex: Male

DRUGS (1)
  1. PEGAPTANIB SODIUM (PEGAPTANIB SODIUM) UNKNOWN [Suspect]
     Indication: MACULAR DEGENERATION
     Dates: start: 20081125

REACTIONS (1)
  - OCULAR HYPERTENSION [None]
